FAERS Safety Report 4485448-1 (Version None)
Quarter: 2004Q4

REPORT INFORMATION
  Report Type: 
  Country: None (occurrence: None)
  Receive Date: 20041026
  Receipt Date: 20041014
  Transmission Date: 20050328
  Serious: Yes (Hospitalization)
  Sender: FDA-Public Use
  Company Number: SE-BRISTOL-MYERS SQUIBB COMPANY-12736856

PATIENT
  Sex: Female

DRUGS (4)
  1. SENDOXAN [Suspect]
     Indication: LYMPHOMA
     Dates: start: 20040929, end: 20040929
  2. DOXORUBICIN HCL [Suspect]
     Indication: LYMPHOMA
     Dates: start: 20040929, end: 20040929
  3. VINCRISTINE [Suspect]
     Indication: LYMPHOMA
     Dates: start: 20040929, end: 20040929
  4. PREDNISONE [Suspect]
     Indication: LYMPHOMA
     Dates: start: 20040929, end: 20040929

REACTIONS (1)
  - COLITIS ISCHAEMIC [None]
